FAERS Safety Report 4911033-0 (Version None)
Quarter: 2006Q1

REPORT INFORMATION
  Report Type: 
  Country: None (occurrence: None)
  Receive Date: 20060214
  Receipt Date: 20051019
  Transmission Date: 20060701
  Serious: Yes (Death, Hospitalization)
  Sender: FDA-Public Use
  Company Number: PR-MERCK-0510USA08143

PATIENT
  Age: 70 Year
  Sex: Female
  Weight: 72 kg

DRUGS (7)
  1. VIOXX [Suspect]
     Indication: MYALGIA
     Route: 048
     Dates: start: 19990101, end: 20011101
  2. COVERA-HS [Concomitant]
     Route: 065
  3. PLETAL [Concomitant]
     Route: 065
  4. TRENTAL [Concomitant]
     Route: 065
  5. TENORMIN [Concomitant]
     Route: 065
  6. PRAVACHOL [Concomitant]
     Route: 065
  7. ALPRAZOLAM [Concomitant]
     Route: 065

REACTIONS (5)
  - ABDOMINAL PAIN UPPER [None]
  - CARDIAC VALVE DISEASE [None]
  - CEREBROVASCULAR ACCIDENT [None]
  - CHEST PAIN [None]
  - DIABETES MELLITUS [None]
